FAERS Safety Report 7917593-X (Version None)
Quarter: 2011Q4

REPORT INFORMATION
  Report Type: 
  Country: None (occurrence: None)
  Receive Date: 20111107
  Receipt Date: 20111020
  Transmission Date: 20120403
  Serious: Yes (Hospitalization)
  Sender: FDA-Public Use
  Company Number: AEDEU201100218

PATIENT
  Age: 57 Year
  Sex: Female

DRUGS (3)
  1. PRIVIGEN [Suspect]
     Indication: CHRONIC INFLAMMATORY DEMYELINATING POLYRADICULONEUROPATHY
     Dosage: 20 GM;X1; IV
     Route: 042
     Dates: start: 20090811, end: 20090811
  2. IMMUNE GLOBULIN INTRAVENOUS (HUMAN) [Suspect]
     Indication: CHRONIC INFLAMMATORY DEMYELINATING POLYRADICULONEUROPATHY
     Dosage: X1; IV
     Route: 042
     Dates: start: 20110401, end: 20110401
  3. GAMUNEX [Suspect]
     Indication: CHRONIC INFLAMMATORY DEMYELINATING POLYRADICULONEUROPATHY
     Dosage: 20 GM; IV
     Route: 042
     Dates: start: 20091219, end: 20110728

REACTIONS (6)
  - HEPATITIS B [None]
  - HEPATITIS A ANTIBODY POSITIVE [None]
  - HEPATITIS B SURFACE ANTIBODY POSITIVE [None]
  - DRUG INTOLERANCE [None]
  - PRODUCT QUALITY ISSUE [None]
  - HEPATITIS B CORE ANTIBODY POSITIVE [None]
